FAERS Safety Report 25466264 (Version 1)
Quarter: 2025Q2

REPORT INFORMATION
  Report Type: Spontaneous
  Country: US (occurrence: US)
  Receive Date: 20250623
  Receipt Date: 20250623
  Transmission Date: 20250717
  Serious: Yes (Other)
  Sender: RADIUS PHARM
  Company Number: US-RADIUS HEALTH INC.-US-RADIUS-25047172

PATIENT
  Sex: Male

DRUGS (2)
  1. TYMLOS [Suspect]
     Active Substance: ABALOPARATIDE
     Indication: Senile osteoporosis
     Dosage: 80 MICROGRAM, QD
     Route: 058
     Dates: end: 20250412
  2. TYMLOS [Suspect]
     Active Substance: ABALOPARATIDE
     Dosage: 80 MICROGRAM, QD
     Route: 058
     Dates: end: 202505

REACTIONS (7)
  - Blindness transient [Recovered/Resolved]
  - Eye swelling [Unknown]
  - Vision blurred [Recovered/Resolved]
  - Impaired driving ability [Unknown]
  - Injection site erythema [Unknown]
  - Dizziness [Unknown]
  - Headache [Unknown]
